FAERS Safety Report 18141897 (Version 1)
Quarter: 2020Q3

REPORT INFORMATION
  Report Type: Report from Study
  Country: None (occurrence: US)
  Receive Date: 20200813
  Receipt Date: 20200813
  Transmission Date: 20201103
  Serious: Yes (Hospitalization, Other)
  Sender: FDA-Public Use
  Company Number: US-ABBVIE-20K-163-3517845-00

PATIENT
  Age: 25 Year
  Sex: Female

DRUGS (1)
  1. HUMIRA [Suspect]
     Active Substance: ADALIMUMAB
     Indication: PSORIATIC ARTHROPATHY
     Dosage: CITRATE FREE
     Route: 058

REACTIONS (5)
  - Tonsillectomy [Recovering/Resolving]
  - Adenoidectomy [Recovering/Resolving]
  - Haematemesis [Recovering/Resolving]
  - Pharyngeal haemorrhage [Recovering/Resolving]
  - Procedural vomiting [Recovering/Resolving]

NARRATIVE: CASE EVENT DATE: 202007
